FAERS Safety Report 5117178-7 (Version None)
Quarter: 2006Q3

REPORT INFORMATION
  Report Type: 
  Country: None (occurrence: None)
  Receive Date: 20060929
  Receipt Date: 20060920
  Transmission Date: 20061208
  Serious: Yes (Other)
  Sender: FDA-Public Use
  Company Number: DE-JNJFOC-20060904679

PATIENT
  Age: 7 Decade
  Sex: Male

DRUGS (1)
  1. REMICADE [Suspect]
     Indication: PSORIASIS
     Dosage: STARTED 1 YEAR AGO.  LAST INFUSION WAS 4 WEEKS AGO
     Route: 042

REACTIONS (4)
  - DRUG INEFFECTIVE [None]
  - PERICARDIAL EFFUSION [None]
  - PERICARDITIS [None]
  - PERICARDITIS INFECTIVE [None]
